FAERS Safety Report 8138850-0 (Version None)
Quarter: 2012Q1

REPORT INFORMATION
  Report Type: 
  Country: None (occurrence: None)
  Receive Date: 20120215
  Receipt Date: 20120206
  Transmission Date: 20120608
  Serious: Yes (Hospitalization, Other)
  Sender: FDA-Public Use
  Company Number: US-ELI_LILLY_AND_COMPANY-US201201003451

PATIENT
  Sex: Female
  Weight: 55.782 kg

DRUGS (8)
  1. ATENOLOL [Concomitant]
  2. VIT C [Concomitant]
  3. CALCIUM [Concomitant]
  4. ENABLEX                            /01760401/ [Concomitant]
  5. EVISTA [Suspect]
     Indication: OSTEOPOROSIS
     Dosage: 60 MG, QD
     Route: 048
     Dates: start: 19990101
  6. MULTIVITAMIN [Concomitant]
  7. CLARINEX [Concomitant]
  8. ASPIRIN [Concomitant]

REACTIONS (3)
  - INTESTINAL PERFORATION [None]
  - PORTAL VEIN THROMBOSIS [None]
  - INTESTINAL OBSTRUCTION [None]
